FAERS Safety Report 8445954-1 (Version None)
Quarter: 2012Q2

REPORT INFORMATION
  Report Type: 
  Country: None (occurrence: None)
  Receive Date: 20120618
  Receipt Date: 20120608
  Transmission Date: 20120825
  Serious: Yes (Other)
  Sender: FDA-Public Use
  Company Number: NL-BAXTER-2012BAX008591

PATIENT

DRUGS (7)
  1. PREDNISONE [Suspect]
     Dosage: 10 MG/EVERY OTHER DAY
     Route: 048
  2. AZATHIOPRINE [Suspect]
     Indication: LUPUS NEPHRITIS
     Dosage: 2 MG/KG/DAY
  3. AZATHIOPRINE [Suspect]
     Dosage: 1 MG/KG/DAY
  4. PREDNISONE [Suspect]
     Indication: LUPUS NEPHRITIS
     Dosage: 1 MG/KG/DAY
     Route: 048
  5. PREDNISONE [Suspect]
     Dosage: 10 MG/DAY
     Route: 048
  6. CYCLOPHOSPHAMIDE [Suspect]
     Indication: LUPUS NEPHRITIS
     Route: 042
  7. CYCLOPHOSPHAMIDE [Suspect]
     Route: 042

REACTIONS (1)
  - COLON CANCER [None]
